FAERS Safety Report 9438570 (Version 1)
Quarter: 2013Q3

REPORT INFORMATION
  Report Type: Spontaneous
  Country: CH (occurrence: CH)
  Receive Date: 20130802
  Receipt Date: 20130802
  Transmission Date: 20140515
  Serious: Yes (Other)
  Sender: FDA-Public Use
  Company Number: CH-BAYER-2013-092588

PATIENT
  Age: 36 Year
  Sex: Male

DRUGS (1)
  1. BETAFERON [Suspect]
     Dosage: 250 ?G, QOD
     Route: 058
     Dates: start: 20090827, end: 20121015

REACTIONS (3)
  - Multiple sclerosis [Unknown]
  - Multiple sclerosis [None]
  - Multiple sclerosis [None]
